FAERS Safety Report 6355242-5 (Version None)
Quarter: 2009Q3

REPORT INFORMATION
  Report Type: 
  Country: None (occurrence: None)
  Receive Date: 20090909
  Receipt Date: 20090826
  Transmission Date: 20100115
  Serious: Yes (Death)
  Sender: FDA-Public Use
  Company Number: CERZ-1000893

PATIENT
  Age: 10 Year
  Sex: Male
  Weight: 24.6 kg

DRUGS (2)
  1. CEREZYME [Suspect]
     Indication: GAUCHER'S DISEASE
     Dosage: 2400 IU, INTRAVENOUS
     Route: 042
     Dates: start: 20010101, end: 20090814
  2. CEREZYME [Suspect]

REACTIONS (1)
  - DEATH [None]
